FAERS Safety Report 5191520-3 (Version None)
Quarter: 2006Q4

REPORT INFORMATION
  Report Type: 
  Country: None (occurrence: None)
  Receive Date: 20061219
  Receipt Date: 20061219
  Transmission Date: 20070319
  Serious: Yes (Hospitalization)
  Sender: FDA-Public Use
  Company Number: None

PATIENT
  Sex: Female
  Weight: 70.9 kg

DRUGS (3)
  1. CISPLATIN [Suspect]
     Dosage: 87 MG
  2. DOXORUBICIN HYDROCHLORIDE [Suspect]
     Dosage: 78 MG
  3. TAXOL [Suspect]
     Dosage: 278 MG

REACTIONS (5)
  - DEEP VEIN THROMBOSIS [None]
  - ELECTROLYTE DEPLETION [None]
  - HYPOCALCAEMIA [None]
  - HYPOKALAEMIA [None]
  - HYPOMAGNESAEMIA [None]
